FAERS Safety Report 9280898 (Version 1)
Quarter: 2013Q2

REPORT INFORMATION
  Report Type: Report from Study
  Country: US (occurrence: US)
  Receive Date: 20130509
  Receipt Date: 20130509
  Transmission Date: 20140414
  Serious: Yes (Other)
  Sender: FDA-Public Use
  Company Number: US-JNJFOC-20130417817

PATIENT
  Sex: Female

DRUGS (1)
  1. REMICADE [Suspect]
     Indication: CROHN^S DISEASE
     Route: 042
     Dates: start: 2012

REACTIONS (5)
  - Pancreatitis [Unknown]
  - Clostridium difficile infection [Unknown]
  - Dehydration [Unknown]
  - Crohn^s disease [Unknown]
  - Exposure during pregnancy [Not Recovered/Not Resolved]
